FAERS Safety Report 25857865 (Version 2)
Quarter: 2025Q4

REPORT INFORMATION
  Report Type: Spontaneous
  Country: US (occurrence: US)
  Receive Date: 20250929
  Receipt Date: 20251013
  Transmission Date: 20260117
  Serious: No
  Sender: ROCHE
  Company Number: US-ROCHE-10000397660

PATIENT
  Age: 52 Year
  Sex: Female

DRUGS (4)
  1. OCREVUS [Suspect]
     Active Substance: OCRELIZUMAB
     Indication: Relapsing-remitting multiple sclerosis
     Route: 042
     Dates: start: 20221110, end: 20250421
  2. REBIF [Concomitant]
     Active Substance: INTERFERON BETA-1A
     Indication: Multiple sclerosis
  3. VUMERITY [Concomitant]
     Active Substance: DIROXIMEL FUMARATE
     Indication: Multiple sclerosis
  4. PLEGRIDY [Concomitant]
     Active Substance: PEGINTERFERON BETA-1A
     Indication: Multiple sclerosis

REACTIONS (1)
  - Mammogram abnormal [Unknown]

NARRATIVE: CASE EVENT DATE: 20250703
